FAERS Safety Report 14422077 (Version 2)
Quarter: 2018Q1

REPORT INFORMATION
  Report Type: Spontaneous
  Country: AT (occurrence: AT)
  Receive Date: 20180123
  Receipt Date: 20180129
  Transmission Date: 20180509
  Serious: Yes (Hospitalization)
  Sender: FDA-Public Use
  Company Number: AT-B.I. PHARMACEUTICALS,INC./RIDGEFIELD-2018-BI-002777

PATIENT
  Age: 73 Year
  Sex: Male

DRUGS (4)
  1. CONCOR [Concomitant]
     Active Substance: BISOPROLOL FUMARATE
     Indication: PRODUCT USED FOR UNKNOWN INDICATION
     Route: 065
  2. TRAJENTA [Suspect]
     Active Substance: LINAGLIPTIN
     Indication: TYPE 2 DIABETES MELLITUS
     Route: 065
  3. PLAVIX [Concomitant]
     Active Substance: CLOPIDOGREL BISULFATE
     Indication: PRODUCT USED FOR UNKNOWN INDICATION
     Route: 065
  4. LASIX [Concomitant]
     Active Substance: FUROSEMIDE
     Indication: PRODUCT USED FOR UNKNOWN INDICATION
     Route: 065

REACTIONS (1)
  - Cardiac failure [Unknown]
